FAERS Safety Report 15292676 (Version 2)
Quarter: 2018Q4

REPORT INFORMATION
  Report Type: Spontaneous
  Country: US (occurrence: US)
  Receive Date: 20180819
  Receipt Date: 20181027
  Transmission Date: 20190204
  Serious: Yes (Other)
  Sender: FDA-Public Use
  Company Number: US-009507513-1808USA004000

PATIENT
  Sex: Female

DRUGS (1)
  1. NEXPLANON [Suspect]
     Active Substance: ETONOGESTREL
     Indication: CONTRACEPTION
     Dosage: 1 DF, UNK
     Route: 059
     Dates: start: 201410

REACTIONS (15)
  - Complication of device removal [Recovered/Resolved]
  - Device dislocation [Recovered/Resolved]
  - Paraesthesia [Unknown]
  - Emotional distress [Unknown]
  - Dizziness [Recovering/Resolving]
  - Anxiety [Unknown]
  - Depressed mood [Unknown]
  - Discomfort [Unknown]
  - Vaginal haemorrhage [Recovering/Resolving]
  - Mood swings [Unknown]
  - Injury [Unknown]
  - Complication associated with device [Recovered/Resolved]
  - Weight increased [Recovering/Resolving]
  - Headache [Recovering/Resolving]
  - Hypoaesthesia [Unknown]

NARRATIVE: CASE EVENT DATE: 2016
